FAERS Safety Report 12191905 (Version 1)
Quarter: 2016Q1

REPORT INFORMATION
  Report Type: Spontaneous
  Country: US (occurrence: US)
  Receive Date: 20160318
  Receipt Date: 20160318
  Transmission Date: 20160526
  Serious: No
  Sender: FDA-Public Use
  Company Number: US-BAUSCH-BL-2015-003651

PATIENT
  Age: 13 Year
  Sex: Male
  Weight: 54.48 kg

DRUGS (1)
  1. MESTINON [Suspect]
     Active Substance: PYRIDOSTIGMINE BROMIDE
     Indication: MYASTHENIA GRAVIS
     Dosage: BETWEEN 120 MG AND 90 MG EVERY THREE HOURS
     Route: 048
     Dates: start: 201409

REACTIONS (3)
  - Fatigue [Not Recovered/Not Resolved]
  - Nasopharyngitis [Unknown]
  - Tremor [Unknown]

NARRATIVE: CASE EVENT DATE: 201412
